FAERS Safety Report 4620723-9 (Version None)
Quarter: 2005Q1

REPORT INFORMATION
  Report Type: 
  Country: None (occurrence: None)
  Receive Date: 20050325
  Receipt Date: 20050318
  Transmission Date: 20050727
  Serious: Yes (Hospitalization)
  Sender: FDA-Public Use
  Company Number: 2005046561

PATIENT
  Age: 63 Year

DRUGS (6)
  1. XANAX [Suspect]
     Indication: ILL-DEFINED DISORDER
  2. THALIDOMIDE (THALIDOMIDE) [Suspect]
     Indication: WALDENSTROM'S MACROGLOBULINAEMIA
     Dosage: 200 MG (1 IN 1 D), ORAL
     Route: 048
     Dates: start: 20040801, end: 20040801
  3. THALIDOMIDE (THALIDOMIDE) [Suspect]
     Indication: WALDENSTROM'S MACROGLOBULINAEMIA
     Dosage: 200 MG (1 IN 1 D), ORAL
     Route: 048
     Dates: start: 20050120
  4. ZOLPIDEM TARTRATE [Suspect]
     Indication: ILL-DEFINED DISORDER
  5. CLOPIDOGREL BISULFATE [Suspect]
     Indication: ILL-DEFINED DISORDER
  6. ANTIHYPERTENSIVES (ANTIHYPERTENSIVES) [Suspect]
     Indication: HYPERTENSION

REACTIONS (4)
  - FATIGUE [None]
  - HYPOTENSION [None]
  - INSOMNIA [None]
  - LOSS OF CONSCIOUSNESS [None]
